FAERS Safety Report 16456399 (Version 1)
Quarter: 2019Q2

REPORT INFORMATION
  Report Type: Spontaneous
  Country: US (occurrence: US)
  Receive Date: 20190510
  Receipt Date: 20190510
  Transmission Date: 20190711
  Serious: Yes (Hospitalization)
  Sender: FDA-Public Use
  Company Number: None

PATIENT
  Age: 72 Year
  Sex: Female

DRUGS (15)
  1. CEPHALEXIN. [Concomitant]
     Active Substance: CEPHALEXIN
  2. BOOST [Concomitant]
     Active Substance: DIETARY SUPPLEMENT
  3. METOPROLOL TARTRATE. [Concomitant]
     Active Substance: METOPROLOL TARTRATE
  4. CELLCEPT [Suspect]
     Active Substance: MYCOPHENOLATE MOFETIL\MYCOPHENOLATE MOFETIL HYDROCHLORIDE
     Indication: RENAL TRANSPLANT
     Route: 048
     Dates: start: 20130823
  5. CYCLOSPORINE MODIFIED [Suspect]
     Active Substance: CYCLOSPORINE
     Indication: RENAL TRANSPLANT
     Route: 048
     Dates: start: 20160321
  6. WARFARIN [Concomitant]
     Active Substance: WARFARIN
  7. LEVOTHYROXIN [Concomitant]
     Active Substance: LEVOTHYROXINE
  8. POT CL MICRO [Concomitant]
  9. SMZ-TMP [Suspect]
     Active Substance: SULFAMETHOXAZOLE\TRIMETHOPRIM
  10. ISOSORB MONO [Concomitant]
     Active Substance: ISOSORBIDE MONONITRATE
  11. CALCITRIOL. [Concomitant]
     Active Substance: CALCITRIOL
  12. NYSTOP [Concomitant]
     Active Substance: NYSTATIN
  13. PREDNISONE. [Concomitant]
     Active Substance: PREDNISONE
  14. MAGNESIUM-OX [Concomitant]
  15. COUMARIN [Concomitant]
     Active Substance: COUMARIN

REACTIONS (2)
  - Fall [None]
  - Fungal infection [None]
